FAERS Safety Report 6326410-3 (Version None)
Quarter: 2009Q3

REPORT INFORMATION
  Report Type: 
  Country: None (occurrence: None)
  Receive Date: 20090825
  Receipt Date: 20090818
  Transmission Date: 20100115
  Serious: Yes (Life-Threatening, Hospitalization)
  Sender: FDA-Public Use
  Company Number: FR-BIOGENIDEC-2009BI013720

PATIENT
  Age: 50 Year
  Sex: Female

DRUGS (5)
  1. TYSABRI [Suspect]
     Indication: MULTIPLE SCLEROSIS
     Route: 042
     Dates: start: 20080602, end: 20090403
  2. TYSABRI [Suspect]
     Route: 042
     Dates: start: 20090520
  3. PRAZEPAM [Concomitant]
     Dates: start: 20040101
  4. MIRTAZAPINE [Concomitant]
     Dates: start: 20040101
  5. BACLOFENE [Concomitant]
     Indication: MUSCLE SPASTICITY
     Dates: start: 20040101

REACTIONS (2)
  - CONDITION AGGRAVATED [None]
  - SUICIDE ATTEMPT [None]
